FAERS Safety Report 19353076 (Version 3)
Quarter: 2021Q4

REPORT INFORMATION
  Report Type: Spontaneous
  Country: FR (occurrence: FR)
  Receive Date: 20210531
  Receipt Date: 20211211
  Transmission Date: 20220303
  Serious: Yes (Hospitalization, Other)
  Sender: FDA-Public Use
  Company Number: NVSC2021FR099705

PATIENT
  Sex: Female
  Weight: 63 kg

DRUGS (14)
  1. CYPROTERONE ACETATE [Suspect]
     Active Substance: CYPROTERONE ACETATE
     Indication: Polycystic ovaries
     Dosage: 50 MG
     Route: 065
     Dates: start: 1991, end: 2013
  2. CYPROTERONE ACETATE [Suspect]
     Active Substance: CYPROTERONE ACETATE
     Dosage: 50 MG (20 DAYS PER MONTH)
     Route: 065
     Dates: start: 20041211, end: 20060615
  3. PREDNISONE [Suspect]
     Active Substance: PREDNISONE
     Indication: Product used for unknown indication
     Dosage: 0.5 MG/KG
     Route: 065
  4. PREDNISONE [Suspect]
     Active Substance: PREDNISONE
     Dosage: 60 MG, QD
     Route: 065
  5. PREDNISONE [Suspect]
     Active Substance: PREDNISONE
     Dosage: 30 MG, QD
     Route: 065
  6. CYPROTERONE ACETATE [Suspect]
     Active Substance: CYPROTERONE ACETATE
     Indication: Polycystic ovaries
     Dosage: 50 MG (20 DAYS PER MONTH)
     Route: 065
     Dates: start: 20060715
  7. CYPROTERONE ACETATE [Suspect]
     Active Substance: CYPROTERONE ACETATE
     Dosage: 50 MG (20 DAYS PER MONTH)
     Route: 065
     Dates: start: 20060805, end: 20070411
  8. CYPROTERONE ACETATE [Suspect]
     Active Substance: CYPROTERONE ACETATE
     Dosage: 50 MG (20 DAYS PER MONTH)
     Route: 065
     Dates: start: 20070515, end: 20090728
  9. CYPROTERONE [Suspect]
     Active Substance: CYPROTERONE
     Indication: Polycystic ovaries
     Dosage: 50 MG (20 DAYS PER MONTH)
     Route: 065
     Dates: start: 20090825, end: 20130615
  10. CYPROTERONE ACETATE [Suspect]
     Active Substance: CYPROTERONE ACETATE
     Indication: Polycystic ovaries
     Dosage: 1 DF (20/28 DAYS)
     Route: 065
     Dates: start: 201204
  11. ESTRADIOL [Concomitant]
     Active Substance: ESTRADIOL
     Indication: Product used for unknown indication
     Dosage: 1 DF, QD (20 DAYS PER MONTH)
     Route: 065
  12. MINIRIN [Concomitant]
     Active Substance: DESMOPRESSIN ACETATE
     Indication: Product used for unknown indication
     Route: 065
  13. MINIRIN [Concomitant]
     Active Substance: DESMOPRESSIN ACETATE
     Dosage: 1 DF, BID (240 UNITS NOT SPECIFIED) (1 IN THE MORNING AND 1 IN THE EVENING)
     Route: 065
  14. MINIRIN [Concomitant]
     Active Substance: DESMOPRESSIN ACETATE
     Dosage: UNK, PRN
     Route: 065

REACTIONS (59)
  - Dizziness [Unknown]
  - Drug dependence [Unknown]
  - Vertigo [Unknown]
  - Meningioma [Recovered/Resolved with Sequelae]
  - Headache [Recovered/Resolved with Sequelae]
  - Nausea [Recovered/Resolved with Sequelae]
  - Vomiting [Recovered/Resolved with Sequelae]
  - Visual acuity reduced [Recovered/Resolved with Sequelae]
  - Corneal opacity [Unknown]
  - Optic neuritis [Unknown]
  - Exophthalmos [Recovered/Resolved]
  - Hemiparesis [Unknown]
  - Optic nerve compression [Unknown]
  - Intracranial pressure increased [Unknown]
  - Papilloedema [Unknown]
  - Brain oedema [Unknown]
  - Cerebral venous sinus thrombosis [Unknown]
  - Allodynia [Recovering/Resolving]
  - Disturbance in attention [Recovering/Resolving]
  - Paraesthesia [Recovering/Resolving]
  - Hyperaesthesia [Recovering/Resolving]
  - Asthenia [Recovering/Resolving]
  - Visual impairment [Recovering/Resolving]
  - Anosmia [Recovering/Resolving]
  - Vision blurred [Unknown]
  - Visual field defect [Unknown]
  - Diplopia [Recovering/Resolving]
  - Trigeminal neuralgia [Recovering/Resolving]
  - Memory impairment [Recovering/Resolving]
  - Prosopagnosia [Unknown]
  - Vestibular disorder [Unknown]
  - Asthenopia [Unknown]
  - Behaviour disorder [Unknown]
  - Dysgraphia [Unknown]
  - Reading disorder [Unknown]
  - Balance disorder [Unknown]
  - Muscular weakness [Unknown]
  - Sensory disturbance [Unknown]
  - Eye disorder [Unknown]
  - Malaise [Unknown]
  - Dysphagia [Unknown]
  - Tachycardia [Unknown]
  - Pain in extremity [Unknown]
  - Fall [Unknown]
  - Procedural pain [Recovering/Resolving]
  - Language disorder [Unknown]
  - Scar [Unknown]
  - Incision site discharge [Unknown]
  - Attention deficit hyperactivity disorder [Unknown]
  - Thymus disorder [Unknown]
  - Hyposmia [Unknown]
  - Ageusia [Unknown]
  - Bone hypertrophy [Unknown]
  - Menometrorrhagia [Unknown]
  - Mastocytosis [Unknown]
  - Sleep apnoea syndrome [Unknown]
  - Fatigue [Unknown]
  - Hypoaesthesia [Unknown]
  - Paresis [Unknown]

NARRATIVE: CASE EVENT DATE: 20130101
